FAERS Safety Report 23545044 (Version 2)
Quarter: 2024Q1

REPORT INFORMATION
  Report Type: Spontaneous
  Country: JP (occurrence: None)
  Receive Date: 20240220
  Receipt Date: 20240223
  Transmission Date: 20240410
  Serious: Yes (Death, Other)
  Sender: FDA-Public Use
  Company Number: 2024A040102

PATIENT
  Age: 76 Year
  Sex: Male

DRUGS (4)
  1. EVUSHELD [Suspect]
     Active Substance: CILGAVIMAB\TIXAGEVIMAB
     Indication: COVID-19 treatment
     Dosage: DOSE UNKNOWN UNKNOWN
     Route: 030
  2. REMDESIVIR [Concomitant]
     Active Substance: REMDESIVIR
     Dosage: DOSE UNKNOWN
     Route: 065
  3. PREDNISOLONE [Concomitant]
     Active Substance: PREDNISOLONE
     Route: 065
  4. PREDNISOLONE [Concomitant]
     Active Substance: PREDNISOLONE
     Route: 065

REACTIONS (4)
  - Death [Fatal]
  - Sepsis [Unknown]
  - Pneumonia [Unknown]
  - Pseudomonas infection [Unknown]
